FAERS Safety Report 7325014-3 (Version None)
Quarter: 2011Q1

REPORT INFORMATION
  Report Type: 
  Country: None (occurrence: None)
  Receive Date: 20110301
  Receipt Date: 20110225
  Transmission Date: 20110831
  Serious: Yes (Hospitalization)
  Sender: FDA-Public Use
  Company Number: US-BRISTOL-MYERS SQUIBB COMPANY-15571540

PATIENT
  Age: 32 Year
  Sex: Male
  Weight: 117 kg

DRUGS (2)
  1. CISPLATIN [Suspect]
     Indication: OESOPHAGEAL ADENOCARCINOMA
     Dosage: LAST ADMINISTERED AT 05OCT2010.
     Dates: start: 20100831
  2. TAXOL [Suspect]
     Indication: OESOPHAGEAL ADENOCARCINOMA
     Dosage: LAST DOSE ON 05OCT2010
     Dates: start: 20100831

REACTIONS (1)
  - SYNCOPE [None]
